FAERS Safety Report 10089917 (Version 1)
Quarter: 2014Q2

REPORT INFORMATION
  Report Type: Spontaneous
  Country: US (occurrence: US)
  Receive Date: 20140421
  Receipt Date: 20140421
  Transmission Date: 20141212
  Serious: Yes (Congenital Anomaly, Other)
  Sender: FDA-Public Use
  Company Number: US-ACTAVIS-2014-07477

PATIENT
  Sex: Male

DRUGS (2)
  1. PACLITAXEL (ATLLC) [Suspect]
     Indication: SEROUS CYSTADENOCARCINOMA OVARY
     Dosage: 60 MG/M2, ON DAY 1,8 AND 15
     Route: 064
  2. CARBOPLATIN (WATSON LABORATORIES) [Suspect]
     Indication: SEROUS CYSTADENOCARCINOMA OVARY
     Dosage: UNK, ON DAY 1
     Route: 064

REACTIONS (3)
  - Talipes [Not Recovered/Not Resolved]
  - Low birth weight baby [Unknown]
  - Foetal exposure during pregnancy [Not Recovered/Not Resolved]
